FAERS Safety Report 23459305 (Version 2)
Quarter: 2024Q1

REPORT INFORMATION
  Report Type: Spontaneous
  Country: US (occurrence: US)
  Receive Date: 20240131
  Receipt Date: 20240205
  Transmission Date: 20240409
  Serious: Yes (Death, Other)
  Sender: FDA-Public Use
  Company Number: US-HALEON-USCH2024004699

PATIENT
  Sex: Male

DRUGS (1)
  1. ROBITUSSIN NOS [Suspect]
     Active Substance: ACETAMINOPHEN\CHLORPHENIRAMINE HYDROCHLORIDE\DEXTROMETHORPHAN\GUAIFENESIN\PHENYLPROPANOLAMINE HYDROC
     Indication: Cough
     Dosage: UNK

REACTIONS (1)
  - Death [Fatal]

NARRATIVE: CASE EVENT DATE: 20231211
